FAERS Safety Report 5853834-0 (Version None)
Quarter: 2008Q3

REPORT INFORMATION
  Report Type: 
  Country: None (occurrence: None)
  Receive Date: 20080822
  Receipt Date: 20080814
  Transmission Date: 20090109
  Serious: Yes (Hospitalization)
  Sender: FDA-Public Use
  Company Number: DE-PURDUE-USA_2008_0034435

PATIENT
  Age: 38 Year
  Sex: Female

DRUGS (1)
  1. MORPHINE SULFATE [Suspect]
     Indication: ANALGESIC THERAPY
     Dosage: 1 MG/KG, Q1H
     Route: 042

REACTIONS (4)
  - HAEMATOMA [None]
  - LUNG INJURY [None]
  - PNEUMOTHORAX [None]
  - RESPIRATORY FAILURE [None]
